FAERS Safety Report 9188373 (Version 2)
Quarter: 2013Q2

REPORT INFORMATION
  Report Type: Spontaneous
  Country: FR (occurrence: FR)
  Receive Date: 20130325
  Receipt Date: 20130402
  Transmission Date: 20140414
  Serious: Yes (Hospitalization)
  Sender: FDA-Public Use
  Company Number: FR-PFIZER INC-2013092666

PATIENT
  Age: 49 Year
  Sex: Female

DRUGS (10)
  1. ALDACTONE [Suspect]
     Indication: CARDIAC FAILURE
     Dosage: 25 MG, 1X/DAY
     Route: 048
     Dates: start: 201204, end: 20120428
  2. LASILIX [Suspect]
     Indication: CARDIAC FAILURE
     Dosage: 250 MG, 1X/DAY
     Route: 048
     Dates: start: 201204, end: 20120428
  3. ESIDREX [Suspect]
     Indication: CARDIAC FAILURE
     Dosage: 25 MG, 1X/DAY
     Route: 048
     Dates: start: 201204, end: 20120428
  4. ATACAND [Suspect]
     Indication: CARDIAC FAILURE
     Dosage: 16 MG, 1X/DAY
     Route: 048
     Dates: start: 20120419, end: 20120428
  5. DETENSIEL [Concomitant]
     Dosage: 10 MG,DAILY
  6. DETENSIEL [Concomitant]
     Dosage: UNK
     Dates: start: 20120430
  7. COUMADINE [Concomitant]
     Dosage: 5 TO 7.5 MG DAILY
  8. OCTAPLEX [Concomitant]
  9. BISOCE [Concomitant]
  10. HEPARINE [Concomitant]

REACTIONS (2)
  - Hypovolaemic shock [Recovered/Resolved]
  - Renal failure acute [Recovered/Resolved]
